FAERS Safety Report 8502953-9 (Version None)
Quarter: 2012Q3

REPORT INFORMATION
  Report Type: 
  Country: None (occurrence: None)
  Receive Date: 20120711
  Receipt Date: 20120705
  Transmission Date: 20120928
  Serious: Yes (Other)
  Sender: FDA-Public Use
  Company Number: US-PFIZER INC-2012136154

PATIENT
  Sex: Female

DRUGS (7)
  1. ACTOS [Concomitant]
     Dosage: UNK
  2. FIORINAL [Concomitant]
     Dosage: UNK
  3. PRAVASTATIN [Concomitant]
     Dosage: UNK
  4. NEXIUM [Concomitant]
     Dosage: UNK
  5. LISINOPRIL [Concomitant]
     Dosage: UNK
  6. LYRICA [Suspect]
     Dosage: 150 MG, 1 TAB, 2X/DAY
  7. LANTUS [Concomitant]
     Dosage: UNK

REACTIONS (5)
  - HYPERTENSION [None]
  - HYPERLIPIDAEMIA [None]
  - DIABETES MELLITUS [None]
  - FIBROMYALGIA [None]
  - GASTROOESOPHAGEAL REFLUX DISEASE [None]
